FAERS Safety Report 5247318-0 (Version None)
Quarter: 2007Q1

REPORT INFORMATION
  Report Type: 
  Country: None (occurrence: None)
  Receive Date: 20070223
  Receipt Date: 20070223
  Transmission Date: 20070707
  Serious: No
  Sender: FDA-Public Use
  Company Number: None

PATIENT
  Age: 7 Year
  Sex: Male
  Weight: 29.4838 kg

DRUGS (1)
  1. ADDERALL XR 10 [Suspect]
     Indication: ATTENTION DEFICIT/HYPERACTIVITY DISORDER
     Dosage: 5-10MG   1X A DAY  PO
     Route: 048
     Dates: start: 20020913, end: 20051124

REACTIONS (5)
  - EMOTIONAL DISORDER [None]
  - SENSORY DISTURBANCE [None]
  - SOCIAL PROBLEM [None]
  - TIC [None]
  - TOURETTE'S DISORDER [None]
